FAERS Safety Report 11254029 (Version 2)
Quarter: 2015Q3

REPORT INFORMATION
  Report Type: Report from Study
  Country: US (occurrence: US)
  Receive Date: 20150709
  Receipt Date: 20150825
  Transmission Date: 20151125
  Serious: Yes (Other)
  Sender: FDA-Public Use
  Company Number: US-AMGEN-USASL2015067292

PATIENT
  Age: 41 Year
  Sex: Female

DRUGS (1)
  1. ENBREL [Suspect]
     Active Substance: ETANERCEPT
     Indication: RHEUMATOID ARTHRITIS
     Dosage: 50 MG, QWK
     Route: 065
     Dates: start: 20141001, end: 20150525

REACTIONS (11)
  - Pyrexia [Recovered/Resolved]
  - Pain [Recovered/Resolved]
  - Influenza like illness [Unknown]
  - Nasal congestion [Not Recovered/Not Resolved]
  - Asthma [Not Recovered/Not Resolved]
  - Chills [Recovered/Resolved]
  - Cough [Not Recovered/Not Resolved]
  - Malaise [Unknown]
  - Pulmonary congestion [Not Recovered/Not Resolved]
  - Headache [Recovered/Resolved]
  - Bronchitis [Not Recovered/Not Resolved]

NARRATIVE: CASE EVENT DATE: 20150525
